FAERS Safety Report 4413075-0 (Version None)
Quarter: 2004Q3

REPORT INFORMATION
  Report Type: 
  Country: None (occurrence: None)
  Receive Date: 20040802
  Receipt Date: 20040802
  Transmission Date: 20050211
  Serious: Yes (Other)
  Sender: FDA-Public Use
  Company Number: None

PATIENT

DRUGS (1)
  1. ZOLOFT [Suspect]
     Indication: POSTPARTUM DEPRESSION
     Dosage: 50 MG 2 TABS/DA ORAL
     Route: 048

REACTIONS (6)
  - AGITATION [None]
  - DEPRESSION [None]
  - DRUG EFFECT DECREASED [None]
  - LETHARGY [None]
  - SELF MUTILATION [None]
  - SUICIDAL IDEATION [None]
